FAERS Safety Report 14425501 (Version 1)
Quarter: 2018Q1

REPORT INFORMATION
  Report Type: Spontaneous
  Country: US (occurrence: US)
  Receive Date: 20180122
  Receipt Date: 20180122
  Transmission Date: 20180509
  Serious: Yes (Death)
  Sender: FDA-Public Use
  Company Number: None

PATIENT
  Age: 63 Year
  Sex: Female
  Weight: 76.5 kg

DRUGS (5)
  1. PROCARDIA [Concomitant]
     Active Substance: NIFEDIPINE
  2. LIPITOR [Concomitant]
     Active Substance: ATORVASTATIN CALCIUM
  3. GLIPIZIDE. [Concomitant]
     Active Substance: GLIPIZIDE
  4. NUPLAZID [Suspect]
     Active Substance: PIMAVANSERIN TARTRATE
     Indication: HALLUCINATION
     Route: 048
     Dates: start: 20161215, end: 20170207
  5. CLOZARIL [Concomitant]
     Active Substance: CLOZAPINE

REACTIONS (1)
  - Sudden death [None]

NARRATIVE: CASE EVENT DATE: 20170208
